FAERS Safety Report 12011122 (Version 1)
Quarter: 2016Q1

REPORT INFORMATION
  Report Type: Spontaneous
  Country: US (occurrence: US)
  Receive Date: 20160205
  Receipt Date: 20160205
  Transmission Date: 20160526
  Serious: Yes (Other)
  Sender: FDA-Public Use
  Company Number: PHEH2016US002580

PATIENT
  Age: 53 Year
  Sex: Female

DRUGS (1)
  1. ZYKADIA [Suspect]
     Active Substance: CERITINIB
     Indication: NON-SMALL CELL LUNG CANCER
     Dosage: UNK UNK, BID
     Route: 048
     Dates: start: 20140701, end: 20140731

REACTIONS (2)
  - Blister [Unknown]
  - Rash generalised [Not Recovered/Not Resolved]
